FAERS Safety Report 9587977 (Version 1)
Quarter: 2013Q4

REPORT INFORMATION
  Report Type: Spontaneous
  Country: NG (occurrence: NG)
  Receive Date: 20131003
  Receipt Date: 20131003
  Transmission Date: 20140711
  Serious: Yes (Other)
  Sender: FDA-Public Use
  Company Number: NG-GILEAD-2013-0084721

PATIENT
  Sex: Male

DRUGS (4)
  1. ATRIPLA [Suspect]
     Indication: PRODUCT USED FOR UNKNOWN INDICATION
     Route: 048
  2. LAMIVUDINE [Concomitant]
     Indication: PRODUCT USED FOR UNKNOWN INDICATION
  3. NEVIRAPINE [Concomitant]
     Indication: PRODUCT USED FOR UNKNOWN INDICATION
  4. STAVUDINE [Concomitant]
     Indication: PRODUCT USED FOR UNKNOWN INDICATION

REACTIONS (3)
  - Cerebrovascular accident [Unknown]
  - Anaphylactic reaction [Unknown]
  - Neurological symptom [Unknown]
